FAERS Safety Report 18698602 (Version 1)
Quarter: 2021Q1

REPORT INFORMATION
  Report Type: Spontaneous
  Country: US (occurrence: US)
  Receive Date: 20210105
  Receipt Date: 20210105
  Transmission Date: 20210419
  Serious: Yes (Other)
  Sender: FDA-Public Use
  Company Number: US-LUPIN PHARMACEUTICALS INC.-2020-11283

PATIENT
  Age: 57 Year
  Sex: Male

DRUGS (5)
  1. METHYLPREDNISOLONE. [Suspect]
     Active Substance: METHYLPREDNISOLONE
     Indication: OSTEOARTHRITIS
     Dosage: UNK, INJECTION
     Route: 065
  2. APIXABAN [Concomitant]
     Active Substance: APIXABAN
     Indication: ATRIAL FIBRILLATION
     Dosage: UNK
     Route: 065
  3. BISMUTH SUBSALICYLATE. [Suspect]
     Active Substance: BISMUTH SUBSALICYLATE
     Indication: DYSPEPSIA
     Dosage: UNK
     Route: 065
  4. AMIODARONE [Concomitant]
     Active Substance: AMIODARONE
     Indication: ATRIAL FIBRILLATION
     Dosage: UNK
     Route: 065
  5. CALCIUM [Suspect]
     Active Substance: CALCIUM
     Indication: DYSPEPSIA
     Dosage: UNK
     Route: 065

REACTIONS (5)
  - Off label use [Unknown]
  - Gastrointestinal candidiasis [Recovered/Resolved]
  - Drug ineffective for unapproved indication [Unknown]
  - Oesophageal candidiasis [Recovered/Resolved]
  - Weight decreased [Unknown]
